FAERS Safety Report 6532012-6 (Version None)
Quarter: 2009Q4

REPORT INFORMATION
  Report Type: 
  Country: None (occurrence: None)
  Receive Date: 20091223
  Receipt Date: 20090522
  Transmission Date: 20100525
  Serious: Yes (Other)
  Sender: FDA-Public Use
  Company Number: 2009220967

PATIENT
  Age: 48 Year
  Sex: Female
  Weight: 68 kg

DRUGS (4)
  1. ATENOLOL [Suspect]
     Dosage: ORAL ; ORAL
     Route: 048
     Dates: start: 20081101, end: 20090101
  2. ATENOLOL [Suspect]
     Dosage: ORAL ; ORAL
     Route: 048
     Dates: start: 20090101, end: 20090501
  3. COZAAR [Concomitant]
  4. LASIX [Concomitant]

REACTIONS (5)
  - ALOPECIA [None]
  - OVARIAN NEOPLASM [None]
  - PRURITUS [None]
  - RASH [None]
  - URTICARIA [None]
